FAERS Safety Report 16063653 (Version 3)
Quarter: 2019Q2

REPORT INFORMATION
  Report Type: Report from Study
  Country: IT (occurrence: IT)
  Receive Date: 20190312
  Receipt Date: 20190403
  Transmission Date: 20190711
  Serious: Yes (Death, Other)
  Sender: FDA-Public Use
  Company Number: IT-AMGEN-ITANI2019036730

PATIENT
  Age: 6 Year
  Sex: Female

DRUGS (2)
  1. BLINATUMOMAB [Suspect]
     Active Substance: BLINATUMOMAB
     Indication: ACUTE LEUKAEMIA
     Dosage: 14.68 MICROGRAM, QD
     Route: 042
     Dates: start: 20190226
  2. BLINATUMOMAB [Suspect]
     Active Substance: BLINATUMOMAB
     Dosage: 15 MILLIGRAM/SQ. METER, QD
     Route: 042
     Dates: end: 20190302

REACTIONS (4)
  - Septic shock [Fatal]
  - Cerebral haemorrhage [Fatal]
  - Thrombocytopenia [Fatal]
  - Disease progression [Fatal]
